FAERS Safety Report 25669295 (Version 2)
Quarter: 2025Q3

REPORT INFORMATION
  Report Type: Spontaneous
  Country: US (occurrence: US)
  Receive Date: 20250812
  Receipt Date: 20250826
  Transmission Date: 20251021
  Serious: No
  Sender: LEO PHARM
  Company Number: US-LEO Pharma-381976

PATIENT
  Age: 49 Year
  Sex: Female

DRUGS (1)
  1. ADBRY [Suspect]
     Active Substance: TRALOKINUMAB-LDRM
     Indication: Product used for unknown indication
     Dosage: TREATMENT IS DISCONTINUED ON AN UNKNOWN DATE
     Route: 058

REACTIONS (1)
  - Drug ineffective [Unknown]
